FAERS Safety Report 9034255 (Version 1)
Quarter: 2013Q1

REPORT INFORMATION
  Report Type: Spontaneous
  Country: US (occurrence: None)
  Receive Date: 20130116
  Receipt Date: 20130116
  Transmission Date: 20140127
  Serious: Yes (Other)
  Sender: FDA-Public Use
  Company Number: None

PATIENT
  Sex: Female
  Weight: 99.79 kg

DRUGS (1)
  1. OXYBUTYNIN [Suspect]
     Route: 048
     Dates: start: 20121101, end: 20121130

REACTIONS (3)
  - Vaginal infection [None]
  - Dysuria [None]
  - Pruritus [None]
